FAERS Safety Report 12142346 (Version 1)
Quarter: 2016Q1

REPORT INFORMATION
  Report Type: Spontaneous
  Country: FR (occurrence: FR)
  Receive Date: 20160303
  Receipt Date: 20160303
  Transmission Date: 20160526
  Serious: Yes (Hospitalization)
  Sender: FDA-Public Use
  Company Number: FR-SA-2016SA035396

PATIENT
  Age: 78 Year
  Sex: Female

DRUGS (12)
  1. PRAVASTATIN SODIUM. [Concomitant]
     Active Substance: PRAVASTATIN SODIUM
     Dosage: 20 MG,1 IN 1 DAY
     Route: 048
     Dates: end: 20160114
  2. MAGNESIUM [Concomitant]
     Active Substance: MAGNESIUM
     Dosage: 1 TABLET/DAY
     Route: 048
  3. APROVEL [Suspect]
     Active Substance: IRBESARTAN
     Indication: HYPERTENSION
     Dosage: 300 MG, TABLET
     Route: 048
     Dates: end: 20160114
  4. FUROSEMIDE. [Suspect]
     Active Substance: FUROSEMIDE
     Indication: HYPERTENSION
     Route: 048
     Dates: end: 20160114
  5. PANTOPRAZOLE [Concomitant]
     Active Substance: PANTOPRAZOLE SODIUM
     Dosage: 40 MG 1 TABLET/DAY
     Route: 048
     Dates: end: 20160114
  6. METFORMIN [Concomitant]
     Active Substance: METFORMIN HYDROCHLORIDE
     Dosage: 850 MG, 3 IN 1 DAY
     Route: 048
     Dates: end: 20160114
  7. LOXAPAC [Concomitant]
     Active Substance: LOXAPINE SUCCINATE
     Dosage: 50 MG 1 TABLET/DAY
     Route: 048
     Dates: end: 20160114
  8. JANUVIA [Concomitant]
     Active Substance: SITAGLIPTIN PHOSPHATE
     Dosage: 100 MG 1 TABLET/DAY
     Route: 048
     Dates: end: 20160114
  9. UVEDOSE [Concomitant]
     Active Substance: CHOLECALCIFEROL
     Dosage: 100000 1 AMPOULE/3 MONTHS;ORAL SOLUTION IN AMPOULE
     Route: 048
  10. FORLAX [Concomitant]
     Active Substance: POLYETHYLENE GLYCOL 4000
     Dosage: 1 TABLET/DAY
     Route: 048
  11. PARKINANE [Concomitant]
     Active Substance: TRIHEXYPHENIDYL HYDROCHLORIDE
     Dosage: 5 MG 1 TABLET/DAY;PROLONGED RELEASE CAPSULE
     Route: 048
     Dates: end: 20160114
  12. KARDEGIC [Concomitant]
     Active Substance: ASPIRIN LYSINE
     Dosage: 75 MG 1 TABLET/DAY;POWDER FOR ORAL SOLUTION IN DOSE - SACHET
     Route: 048
     Dates: end: 20160114

REACTIONS (1)
  - Acute kidney injury [Recovered/Resolved]

NARRATIVE: CASE EVENT DATE: 20160114
